FAERS Safety Report 9667811 (Version 2)
Quarter: 2014Q1

REPORT INFORMATION
  Report Type: Report from Study
  Country: US (occurrence: US)
  Receive Date: 20131104
  Receipt Date: 20140205
  Transmission Date: 20141002
  Serious: Yes (Hospitalization)
  Sender: FDA-Public Use
  Company Number: US-GLAXOSMITHKLINE-A1047937A

PATIENT
  Age: 52 Year
  Sex: Male
  Weight: 122.7 kg

DRUGS (6)
  1. OFATUMUMAB [Suspect]
     Indication: CHRONIC LYMPHOCYTIC LEUKAEMIA
     Dosage: 1000MG WEEKLY
     Route: 042
     Dates: start: 20130808
  2. INVESTIGATIONAL STUDY DRUG [Suspect]
     Indication: CHRONIC LYMPHOCYTIC LEUKAEMIA
     Dosage: 150MG TWICE PER DAY
     Route: 048
     Dates: start: 20130808
  3. METFORMIN ER [Concomitant]
  4. CIPROFLOXACIN [Concomitant]
     Dates: start: 20130822, end: 20130829
  5. CETIRIZINE [Concomitant]
  6. NEULASTA [Concomitant]
     Dates: start: 201309, end: 201309

REACTIONS (2)
  - Colitis [Recovered/Resolved]
  - Nausea [Recovered/Resolved]
